FAERS Safety Report 8760688 (Version 1)
Quarter: 2012Q4

REPORT INFORMATION
  Report Type: 
  Country: NL (occurrence: US)
  Receive Date: 20120830
  Receipt Date: 20120830
  Transmission Date: 20130627
  Serious: Yes (Hospitalization, Other)
  Sender: FDA-Public Use
  Company Number: US-NOVEN-12US005187

PATIENT
  Age: 63 Year
  Sex: Female

DRUGS (2)
  1. PAROXETINE [Suspect]
     Indication: PRODUCT USED FOR UNKNOWN INDICATION
     Dosage: 40 mg, qd
     Route: 065
  2. QUETIAPINE [Suspect]
     Indication: PRODUCT USED FOR UNKNOWN INDICATION
     Dosage: 800 mg, qd
     Route: 065

REACTIONS (10)
  - Electrocardiogram QT prolonged [Recovered/Resolved]
  - Pneumonia [Unknown]
  - Delirium [Recovered/Resolved]
  - Disorientation [Recovered/Resolved]
  - Hypokalaemia [Recovered/Resolved]
  - Anaemia [Unknown]
  - Blood glucose increased [Unknown]
  - Aspartate aminotransferase increased [Unknown]
  - Gastrointestinal haemorrhage [Unknown]
  - Abnormal behaviour [Recovered/Resolved]
